FAERS Safety Report 10250679 (Version 2)
Quarter: 2014Q3

REPORT INFORMATION
  Report Type: Report from Study
  Country: ES (occurrence: ES)
  Receive Date: 20140620
  Receipt Date: 20140707
  Transmission Date: 20150326
  Serious: Yes (Death)
  Sender: FDA-Public Use
  Company Number: ES-GLAXOSMITHKLINE-B1005851A

PATIENT
  Age: 30 Year
  Sex: Female

DRUGS (2)
  1. VOLIBRIS [Suspect]
     Active Substance: AMBRISENTAN
     Indication: PULMONARY ARTERIAL HYPERTENSION
     Dosage: 5MG PER DAY
     Route: 048
     Dates: start: 201403
  2. EPOPROSTENOL [Suspect]
     Active Substance: EPOPROSTENOL
     Indication: PULMONARY ARTERIAL HYPERTENSION
     Dosage: 14NGKM PER DAY
     Route: 042
     Dates: start: 201403

REACTIONS (9)
  - Multi-organ failure [Fatal]
  - Bradycardia [Unknown]
  - Thrombocytopenia [Fatal]
  - Cardiac failure [Fatal]
  - Hyperaemia [Unknown]
  - Hypotension [Unknown]
  - Fatigue [Unknown]
  - Depressed level of consciousness [Unknown]
  - Pulmonary hypertension [Fatal]

NARRATIVE: CASE EVENT DATE: 201406
